FAERS Safety Report 7381790-5 (Version None)
Quarter: 2011Q1

REPORT INFORMATION
  Report Type: 
  Country: None (occurrence: None)
  Receive Date: 20110329
  Receipt Date: 20110318
  Transmission Date: 20110831
  Serious: Yes (Life-Threatening)
  Sender: FDA-Public Use
  Company Number: DK-BAXTER-2011BH007073

PATIENT
  Age: 47 Year
  Sex: Male

DRUGS (2)
  1. EXTRANEAL [Concomitant]
     Indication: RENAL FAILURE
     Route: 033
     Dates: start: 19990101
  2. DIANEAL [Suspect]
     Indication: RENAL FAILURE
     Route: 033
     Dates: start: 19990101

REACTIONS (1)
  - SCLEROSING ENCAPSULATING PERITONITIS [None]
